FAERS Safety Report 23728640 (Version 1)
Quarter: 2024Q2

REPORT INFORMATION
  Report Type: Spontaneous
  Country: CA (occurrence: CA)
  Receive Date: 20240410
  Receipt Date: 20240410
  Transmission Date: 20240716
  Serious: Yes (Other)
  Sender: FDA-Public Use
  Company Number: CA-PFIZER INC-202400080833

PATIENT
  Age: 55 Year
  Sex: Female

DRUGS (1)
  1. METHOTREXATE SODIUM [Suspect]
     Active Substance: METHOTREXATE SODIUM
     Indication: Rheumatoid arthritis
     Dosage: UNK
     Dates: end: 2009

REACTIONS (4)
  - Non-Hodgkin^s lymphoma [Unknown]
  - Cataract [Unknown]
  - Glaucoma [Unknown]
  - Asthma [Unknown]

NARRATIVE: CASE EVENT DATE: 20090101
